FAERS Safety Report 5584400-2 (Version None)
Quarter: 2008Q1

REPORT INFORMATION
  Report Type: 
  Country: None (occurrence: None)
  Receive Date: 20080108
  Receipt Date: 20080102
  Transmission Date: 20080703
  Serious: Yes (Disabling)
  Sender: FDA-Public Use
  Company Number: GB-MERCK-0801GBR00006

PATIENT
  Age: 64 Year
  Weight: 106 kg

DRUGS (7)
  1. VYTORIN [Suspect]
     Indication: BLOOD CHOLESTEROL INCREASED
     Route: 048
     Dates: start: 20060110, end: 20071121
  2. ASPIRIN [Concomitant]
     Route: 048
     Dates: start: 20040818
  3. AZITHROMYCIN [Concomitant]
     Route: 048
     Dates: start: 20060328
  4. ACETAMINOPHEN AND CODEINE PHOSPHATE [Concomitant]
     Route: 048
     Dates: start: 20070413
  5. ENALAPRIL MALEATE [Concomitant]
     Indication: HYPERTENSION
     Route: 048
     Dates: start: 19961115
  6. OMEPRAZOLE [Concomitant]
     Indication: HIATUS HERNIA
     Route: 048
     Dates: start: 20050831
  7. TAMOXIFEN CITRATE [Concomitant]
     Indication: BREAST CANCER
     Route: 048
     Dates: start: 20060403

REACTIONS (2)
  - PAIN IN EXTREMITY [None]
  - SPINAL COLUMN STENOSIS [None]
